FAERS Safety Report 13178080 (Version 1)
Quarter: 2017Q1

REPORT INFORMATION
  Report Type: Spontaneous
  Country: JP (occurrence: JP)
  Receive Date: 20170202
  Receipt Date: 20170202
  Transmission Date: 20170428
  Serious: Yes (Other)
  Sender: FDA-Public Use
  Company Number: JP-ENDO PHARMACEUTICALS INC-2017-000417

PATIENT

DRUGS (1)
  1. PREDNISOLONE ORAL SOLUTION [Suspect]
     Active Substance: PREDNISOLONE
     Indication: ADULT T-CELL LYMPHOMA/LEUKAEMIA
     Dosage: 30 MG, UNKNOWN
     Route: 065

REACTIONS (4)
  - Blood lactate dehydrogenase increased [Recovering/Resolving]
  - Altered state of consciousness [Unknown]
  - Cytomegalovirus infection [Recovering/Resolving]
  - Interleukin-2 receptor increased [Recovering/Resolving]
